FAERS Safety Report 5364031-X (Version None)
Quarter: 2007Q2

REPORT INFORMATION
  Report Type: 
  Country: None (occurrence: None)
  Receive Date: 20070620
  Receipt Date: 20070608
  Transmission Date: 20071010
  Serious: Yes (Hospitalization, Other)
  Sender: FDA-Public Use
  Company Number: US-PFIZER INC-2007033449

PATIENT
  Sex: Male
  Weight: 95.3 kg

DRUGS (13)
  1. LYRICA [Suspect]
     Indication: DIABETIC NEUROPATHY
  2. METOPROLOL SUCCINATE [Concomitant]
  3. LISINOPRIL [Concomitant]
  4. PROTONIX [Concomitant]
  5. CELEXA [Concomitant]
  6. SEROQUEL [Concomitant]
  7. LANTUS [Concomitant]
  8. INSULIN [Concomitant]
  9. NOVOLOG [Concomitant]
  10. TRAZODONE HCL [Concomitant]
  11. PROMETHAZINE [Concomitant]
  12. ULTRAM [Concomitant]
     Indication: BACK PAIN
  13. ZYPREXA [Concomitant]

REACTIONS (2)
  - DRUG SCREEN FALSE POSITIVE [None]
  - SUICIDE ATTEMPT [None]
